FAERS Safety Report 10273132 (Version 1)
Quarter: 2014Q1

REPORT INFORMATION
  Report Type: Spontaneous
  Country: US (occurrence: None)
  Receive Date: 20140306
  Receipt Date: 20140306
  Transmission Date: 20141002
  Serious: Yes (Hospitalization)
  Sender: FDA-Public Use
  Company Number: 163-21880-13083514

PATIENT
  Age: 81 Year
  Sex: Female

DRUGS (1)
  1. REVLIMID (LENALIDOMIDE) (10  MILLIGRAM) [Suspect]
     Indication: PLASMA CELL MYELOMA
     Dosage: 10 MG, 21 IN 28 D
     Dates: start: 20130722

REACTIONS (1)
  - Muscle spasms [None]
